FAERS Safety Report 10239302 (Version 2)
Quarter: 2014Q2

REPORT INFORMATION
  Report Type: Report from Study
  Country: DE (occurrence: DE)
  Receive Date: 20140616
  Receipt Date: 20140616
  Transmission Date: 20141212
  Serious: Yes (Hospitalization, Other)
  Sender: FDA-Public Use
  Company Number: DE-BRISTOL-MYERS SQUIBB COMPANY-20734646

PATIENT
  Age: 67 Year
  Sex: Male

DRUGS (3)
  1. IPILIMUMAB [Suspect]
     Indication: MALIGNANT MELANOMA
     Route: 042
     Dates: start: 20140429
  2. PIPERACILLIN [Concomitant]
     Dates: start: 20140505, end: 20140519
  3. TAZOBACTAM SODIUM [Concomitant]
     Dates: start: 20140505, end: 20140519

REACTIONS (3)
  - Acute respiratory distress syndrome [Recovered/Resolved]
  - Herpes simplex [Unknown]
  - Epstein-Barr virus infection [Unknown]
